FAERS Safety Report 8266947-3 (Version None)
Quarter: 2012Q2

REPORT INFORMATION
  Report Type: 
  Country: None (occurrence: None)
  Receive Date: 20120404
  Receipt Date: 20120404
  Transmission Date: 20120825
  Serious: Yes (Death)
  Sender: FDA-Public Use
  Company Number: None

PATIENT
  Age: 82 Year
  Sex: Female

DRUGS (5)
  1. PANTOPRAZOLE [Concomitant]
  2. ASPIRIN [Concomitant]
  3. DIGOXIN [Concomitant]
  4. PHENYTOIN [Concomitant]
  5. REVLIMID [Suspect]
     Indication: LYMPHOMA
     Dosage: REVLIMID 10 MG DAILY X21D/28D ORALLY
     Route: 048
     Dates: start: 20110901, end: 20111201

REACTIONS (8)
  - PAIN IN EXTREMITY [None]
  - ERYTHEMA [None]
  - THROMBOSIS [None]
  - ASTHENIA [None]
  - SEPTIC SHOCK [None]
  - NECROTISING FASCIITIS [None]
  - DERMATITIS BULLOUS [None]
  - LEG AMPUTATION [None]
